FAERS Safety Report 11145154 (Version 1)
Quarter: 2015Q2

REPORT INFORMATION
  Report Type: Spontaneous
  Country: CO (occurrence: CO)
  Receive Date: 20150528
  Receipt Date: 20150528
  Transmission Date: 20150821
  Serious: Yes (Death)
  Sender: FDA-Public Use
  Company Number: CO-009507513-1505COL007246

PATIENT
  Age: 61 Year
  Sex: Female

DRUGS (3)
  1. VYTORIN [Suspect]
     Active Substance: EZETIMIBE\SIMVASTATIN
     Dosage: UNK
     Route: 048
  2. CEPHALEXIN. [Concomitant]
     Active Substance: CEPHALEXIN
  3. ARCOXIA 60MG [Suspect]
     Active Substance: ETORICOXIB
     Dosage: UNK
     Route: 048

REACTIONS (5)
  - Cardiac hypertrophy [Fatal]
  - Procedural pain [Unknown]
  - Haemorrhage [Unknown]
  - Vomiting [Unknown]
  - Adverse event [Unknown]

NARRATIVE: CASE EVENT DATE: 20150510
